FAERS Safety Report 23088201 (Version 1)
Quarter: 2023Q4

REPORT INFORMATION
  Report Type: Spontaneous
  Country: US (occurrence: US)
  Receive Date: 20231020
  Receipt Date: 20231020
  Transmission Date: 20240109
  Serious: Yes (Hospitalization, Other)
  Sender: FDA-Public Use
  Company Number: US-West-Ward Pharmaceuticals Corp.-US-H14001-18-00089

PATIENT
  Age: 54 Year
  Sex: Male
  Weight: 83.9 kg

DRUGS (2)
  1. INFUMORPH [Suspect]
     Active Substance: MORPHINE SULFATE
     Indication: Pain
     Dosage: 0.497 MILLIGRAM, QD
     Route: 037
  2. INFUMORPH [Suspect]
     Active Substance: MORPHINE SULFATE
     Dosage: 0.288 MILLIGRAM, QD
     Route: 037

REACTIONS (5)
  - Medical device site erythema [Unknown]
  - Medical device site warmth [Unknown]
  - Medical device site infection [Recovered/Resolved]
  - Seroma [Recovered/Resolved]
  - Cerebrospinal fluid leakage [Recovered/Resolved]

NARRATIVE: CASE EVENT DATE: 20170530
